FAERS Safety Report 20589077 (Version 2)
Quarter: 2022Q1

REPORT INFORMATION
  Report Type: Spontaneous
  Country: US (occurrence: US)
  Receive Date: 20220314
  Receipt Date: 20220324
  Transmission Date: 20220423
  Serious: Yes (Other)
  Sender: FDA-Public Use
  Company Number: US-PURACAP-US-2022EPCSPO00164

PATIENT
  Sex: Male

DRUGS (4)
  1. CASANTHRANOL\DOCUSATE SODIUM [Suspect]
     Active Substance: CASANTHRANOL\DOCUSATE SODIUM
     Indication: Constipation prophylaxis
     Dosage: 1-3 SOFTGELS DAILY AT BEDTIME
     Route: 048
     Dates: start: 2021
  2. TUMS [Suspect]
     Active Substance: CALCIUM CARBONATE
     Indication: Throat irritation
     Route: 065
  3. METOPROLOL [Concomitant]
     Active Substance: METOPROLOL
     Indication: Product used for unknown indication
     Route: 065
  4. LOVASTATIN [Concomitant]
     Active Substance: LOVASTATIN
     Indication: Product used for unknown indication
     Route: 065

REACTIONS (4)
  - Foreign body in throat [Unknown]
  - Throat irritation [Not Recovered/Not Resolved]
  - Regurgitation [Unknown]
  - Product physical issue [Unknown]
